FAERS Safety Report 5239313-2 (Version None)
Quarter: 2007Q1

REPORT INFORMATION
  Report Type: 
  Country: None (occurrence: None)
  Receive Date: 20070216
  Receipt Date: 20070205
  Transmission Date: 20070707
  Serious: Yes (Hospitalization, Disabling)
  Sender: FDA-Public Use
  Company Number: US-JNJFOC-20070202006

PATIENT
  Sex: Male
  Weight: 64 kg

DRUGS (2)
  1. INFLIXIMAB [Suspect]
     Indication: INFLAMMATORY BOWEL DISEASE
     Route: 042
  2. 6MP [Concomitant]

REACTIONS (2)
  - PROCTITIS [None]
  - RECTAL HAEMORRHAGE [None]
